FAERS Safety Report 22595200 (Version 1)
Quarter: 2023Q2

REPORT INFORMATION
  Report Type: Report from Study
  Country: DE (occurrence: DE)
  Receive Date: 20230613
  Receipt Date: 20230613
  Transmission Date: 20230722
  Serious: Yes (Hospitalization)
  Sender: FDA-Public Use
  Company Number: DE-SHIRE-ALL1-2013-04485

PATIENT
  Age: 0 Year
  Sex: Male
  Weight: 6 kg

DRUGS (25)
  1. IDURSULFASE [Suspect]
     Active Substance: IDURSULFASE
     Indication: Mucopolysaccharidosis II
     Dosage: 0.5 MG/KG, 1X/WEEK
     Route: 042
     Dates: start: 20100428, end: 20100628
  2. IDURSULFASE [Suspect]
     Active Substance: IDURSULFASE
     Dosage: 3 MG, 1X/WEEK
     Route: 042
     Dates: start: 20100428, end: 20100620
  3. IDURSULFASE [Suspect]
     Active Substance: IDURSULFASE
     Dosage: 3.1 MG, 1X/WEEK
     Route: 042
     Dates: start: 20100621, end: 20100627
  4. IDURSULFASE [Suspect]
     Active Substance: IDURSULFASE
     Dosage: 3.2 MG, 1X/WEEK
     Route: 042
     Dates: start: 20100628
  5. D-fluoretten [Concomitant]
     Indication: Rickets
     Dosage: UNK
     Route: 048
     Dates: start: 20100224, end: 2013
  6. CYCLOSPORINE [Concomitant]
     Active Substance: CYCLOSPORINE
     Indication: Bone marrow transplant
     Dosage: UNK
     Route: 048
     Dates: start: 201007, end: 201011
  7. VALCYTE [Concomitant]
     Active Substance: VALGANCICLOVIR HYDROCHLORIDE
     Indication: Antiviral prophylaxis
     Dosage: UNK
     Route: 048
     Dates: start: 201007, end: 201011
  8. NOXAFIL [Concomitant]
     Active Substance: POSACONAZOLE
     Indication: Bone marrow transplant
     Dosage: UNK
     Route: 048
     Dates: start: 201007, end: 201011
  9. OMEPRAZOLE [Concomitant]
     Active Substance: OMEPRAZOLE
     Indication: Gastrointestinal disorder prophylaxis
     Dosage: UNK
     Route: 048
     Dates: start: 201007, end: 201011
  10. AMPHOTERICIN B [Concomitant]
     Active Substance: AMPHOTERICIN B
     Indication: Bone marrow transplant
     Dosage: UNK
     Route: 048
     Dates: start: 201007, end: 201011
  11. PENICILLIN V [Concomitant]
     Active Substance: PENICILLIN V
     Indication: Bone marrow transplant
     Dosage: UNK
     Route: 048
     Dates: start: 201007, end: 201010
  12. FOLIC ACID [Concomitant]
     Active Substance: FOLIC ACID
     Indication: Product substitution
     Dosage: UNK
     Route: 048
     Dates: start: 201007, end: 201011
  13. MINERALS\PROBIOTICS NOS\VITAMINS [Concomitant]
     Active Substance: MINERALS\PROBIOTICS NOS\VITAMINS
     Indication: Nutritional supplementation
     Dosage: UNK
     Route: 048
     Dates: start: 201007, end: 201011
  14. CYCLOSPORINE [Concomitant]
     Active Substance: CYCLOSPORINE
     Indication: Bone marrow transplant
     Dosage: UNK
     Route: 048
     Dates: start: 201007, end: 201011
  15. PENICILLIN [Concomitant]
     Active Substance: PENICILLIN
     Indication: Infection
     Dosage: UNK
     Route: 048
     Dates: start: 20101027, end: 201112
  16. PENICILLIN [Concomitant]
     Active Substance: PENICILLIN
     Dosage: UNK
     Route: 048
     Dates: start: 2011, end: 201108
  17. PENICILLIN [Concomitant]
     Active Substance: PENICILLIN
     Dosage: UNK
     Route: 048
     Dates: start: 20110824, end: 201208
  18. MEPIVACAINE [Concomitant]
     Active Substance: MEPIVACAINE HYDROCHLORIDE
     Indication: Local anaesthesia
     Dosage: UNK
     Route: 050
     Dates: start: 20110815, end: 20110815
  19. METHYLPHENIDATE [Concomitant]
     Active Substance: METHYLPHENIDATE
     Indication: Psychomotor hyperactivity
     Dosage: UNK
     Route: 048
     Dates: start: 20150207, end: 20150207
  20. PIPAMPERONE [Concomitant]
     Active Substance: PIPAMPERONE
     Indication: Psychomotor hyperactivity
     Dosage: UNK
     Route: 048
     Dates: start: 20150213, end: 2016
  21. XYLOMETAZOLINE HYDROCHLORIDE [Concomitant]
     Active Substance: XYLOMETAZOLINE HYDROCHLORIDE
     Indication: Rhinitis
     Dosage: UNK
     Route: 045
     Dates: start: 201503, end: 2015
  22. DIETARY SUPPLEMENT\HERBALS [Concomitant]
     Active Substance: DIETARY SUPPLEMENT\HERBALS
     Dosage: UNK
     Route: 048
     Dates: start: 201503, end: 2015
  23. POLYETHYLENE GLYCOLS [Concomitant]
     Active Substance: POLYETHYLENE GLYCOLS
     Indication: Constipation
     Dosage: UNK
     Route: 048
     Dates: start: 2018
  24. MELATONIN [Concomitant]
     Active Substance: MELATONIN
     Indication: Sleep disorder
     Dosage: UNK
     Route: 048
     Dates: start: 2018
  25. ARIPIPRAZOLE [Concomitant]
     Active Substance: ARIPIPRAZOLE
     Indication: Behaviour disorder
     Dosage: UNK
     Route: 048
     Dates: start: 201806

REACTIONS (1)
  - Mucopolysaccharidosis II [Recovered/Resolved]

NARRATIVE: CASE EVENT DATE: 20100711
